FAERS Safety Report 9237426 (Version 1)
Quarter: 2013Q2

REPORT INFORMATION
  Report Type: Report from Study
  Country: US (occurrence: US)
  Receive Date: 20130417
  Receipt Date: 20130417
  Transmission Date: 20140414
  Serious: Yes (Other)
  Sender: FDA-Public Use
  Company Number: US-US-EMD SERONO, INC.-7205276

PATIENT
  Sex: Female

DRUGS (1)
  1. REBIF [Suspect]
     Indication: MULTIPLE SCLEROSIS
     Route: 058
     Dates: start: 20060316

REACTIONS (5)
  - Diabetes mellitus [Not Recovered/Not Resolved]
  - Injection site vesicles [Unknown]
  - Abdominal pain [Not Recovered/Not Resolved]
  - Injection site erythema [Unknown]
  - Injection site induration [Unknown]
